FAERS Safety Report 8813249 (Version 1)
Quarter: 2012Q4

REPORT INFORMATION
  Report Type: 
  Country: US (occurrence: US)
  Receive Date: 20120927
  Receipt Date: 20120927
  Transmission Date: 20130627
  Serious: No
  Sender: FDA-Public Use
  Company Number: US-AMGEN-USASP2012040276

PATIENT
  Sex: Male

DRUGS (1)
  1. PROLIA [Suspect]
     Indication: BONE LOSS
     Dosage: 60 mg, q6mo
     Dates: start: 20120614

REACTIONS (1)
  - Dyspnoea [Not Recovered/Not Resolved]
